FAERS Safety Report 10207211 (Version 1)
Quarter: 2014Q2

REPORT INFORMATION
  Report Type: Spontaneous
  Country: US (occurrence: US)
  Receive Date: 20140530
  Receipt Date: 20140530
  Transmission Date: 20141212
  Serious: No
  Sender: FDA-Public Use
  Company Number: US-GLAXOSMITHKLINE-A1024152A

PATIENT
  Age: 46 Year
  Sex: Female

DRUGS (2)
  1. VENTOLIN [Suspect]
     Indication: ASTHMA
     Dosage: 2PUFF FOUR TIMES PER DAY
     Route: 055
     Dates: start: 20130507, end: 20130513
  2. NO CONCURRENT MEDICATION [Concomitant]

REACTIONS (2)
  - Drug ineffective [Recovering/Resolving]
  - Cough [Unknown]
